FAERS Safety Report 5814736-9 (Version None)
Quarter: 2008Q3

REPORT INFORMATION
  Report Type: 
  Country: None (occurrence: None)
  Receive Date: 20080718
  Receipt Date: 20080707
  Transmission Date: 20090109
  Serious: Yes (Death, Hospitalization)
  Sender: FDA-Public Use
  Company Number: BE-JNJFOC-20080505531

PATIENT
  Age: 87 Year
  Sex: Male
  Weight: 75 kg

DRUGS (9)
  1. REMICADE [Suspect]
     Route: 042
  2. REMICADE [Suspect]
     Indication: COLITIS ULCERATIVE
     Route: 042
  3. PENTASE [Concomitant]
  4. OMEPRAZOLE [Concomitant]
  5. LISINOPRIL [Concomitant]
  6. CO-COD [Concomitant]
  7. MEDROL [Concomitant]
  8. LIDODERM [Concomitant]
  9. ALL OTHER THERAPEUTIC [Concomitant]

REACTIONS (1)
  - TUBERCULOSIS [None]
